FAERS Safety Report 7777412-1 (Version None)
Quarter: 2011Q3

REPORT INFORMATION
  Report Type: 
  Country: None (occurrence: None)
  Receive Date: 20110926
  Receipt Date: 20110920
  Transmission Date: 20111222
  Serious: Yes (Other)
  Sender: FDA-Public Use
  Company Number: US-PFIZER INC-2011223945

PATIENT
  Sex: Female
  Weight: 109 kg

DRUGS (12)
  1. TYLENOL PM [Concomitant]
     Indication: SLEEP DISORDER
     Dosage: UNK, AS NEEDED
  2. ASPIRIN [Concomitant]
     Indication: CARDIAC DISORDER
     Dosage: 81 MG, DAILY
  3. BYSTOLIC [Concomitant]
     Indication: CARDIAC DISORDER
     Dosage: 5 MG, DAILY
  4. FUROSEMIDE [Concomitant]
     Indication: CARDIAC DISORDER
     Dosage: 20 MG, 2X/DAY
  5. REVATIO [Suspect]
     Indication: PULMONARY HYPERTENSION
     Dosage: 20 MG, 3X/DAY
     Dates: start: 20110801, end: 20110801
  6. MULTI-VITAMINS [Concomitant]
     Dosage: UNK
  7. WARFARIN [Concomitant]
     Indication: CARDIAC DISORDER
     Dosage: 3 MG, DAILY
  8. OMEPRAZOLE [Concomitant]
     Indication: GASTRIC DISORDER
     Dosage: 200 MG, DAILY
  9. FOLIC ACID [Concomitant]
     Dosage: 1 MG, DAILY
  10. LIPITOR [Concomitant]
     Dosage: 10 MG, DAILY
  11. CHLORPHENIRAMINE MALEATE [Concomitant]
     Dosage: UNK
  12. PRAZOSIN [Concomitant]
     Indication: CARDIAC DISORDER
     Dosage: UNK

REACTIONS (2)
  - EYE DISORDER [None]
  - PULMONARY HYPERTENSION [None]
